FAERS Safety Report 8193662 (Version 5)
Quarter: 2013Q1

REPORT INFORMATION
  Report Type: Report from Study
  Country: IT (occurrence: IT)
  Receive Date: 20111021
  Receipt Date: 20130311
  Transmission Date: 20140127
  Serious: Yes (Death, Life-Threatening, Hospitalization, Other)
  Sender: FDA-Public Use
  Company Number: IT-MPIJNJ-2011-04450

PATIENT
  Sex: 0

DRUGS (9)
  1. VELCADE [Suspect]
     Indication: PLASMA CELL MYELOMA
     Dosage: 1.8 MG, UNK
     Route: 042
     Dates: start: 20110627, end: 20110906
  2. DEXAMETHASONE [Concomitant]
     Indication: PLASMA CELL MYELOMA
     Dosage: 40 MG, UNK
     Route: 042
     Dates: start: 20110627, end: 20110906
  3. DUROGESIC [Concomitant]
     Indication: PAIN
     Dosage: 100 MG, UNK
     Route: 065
  4. ZOLOFT                             /01011401/ [Concomitant]
     Indication: DEPRESSION
     Route: 065
  5. OMEPRAZOLE [Concomitant]
     Indication: GASTROINTESTINAL DISORDER
     Dosage: 20 MG, UNK
     Route: 065
  6. ACICLOVIR [Concomitant]
     Indication: HERPES ZOSTER
     Dosage: 400 MG, UNK
     Route: 065
     Dates: start: 20110627, end: 20111013
  7. ARANESP [Concomitant]
     Dosage: UNK
     Dates: start: 20110704, end: 20110819
  8. CARDIRENE [Concomitant]
  9. LASIX                              /00032601/ [Concomitant]

REACTIONS (1)
  - Pulmonary fibrosis [Fatal]
